FAERS Safety Report 5409903-2 (Version None)
Quarter: 2007Q3

REPORT INFORMATION
  Report Type: 
  Country: None (occurrence: None)
  Receive Date: 20070809
  Receipt Date: 20070730
  Transmission Date: 20080115
  Serious: Yes (Other)
  Sender: FDA-Public Use
  Company Number: US-PFIZER INC-2007064302

PATIENT
  Sex: Female
  Weight: 66.2 kg

DRUGS (3)
  1. CHANTIX [Suspect]
     Indication: SMOKING CESSATION THERAPY
     Dates: start: 20070701, end: 20070730
  2. DIURETICS [Concomitant]
     Indication: OEDEMA PERIPHERAL
  3. PRILOSEC [Concomitant]

REACTIONS (2)
  - MIGRAINE [None]
  - VISUAL ACUITY REDUCED [None]
